FAERS Safety Report 24142629 (Version 1)
Quarter: 2024Q3

REPORT INFORMATION
  Report Type: Report from Study
  Country: US (occurrence: US)
  Receive Date: 20240726
  Receipt Date: 20240726
  Transmission Date: 20241016
  Serious: Yes (Hospitalization, Other)
  Sender: HLS THERAPEUTICS
  Company Number: US-HLS-202400334

PATIENT
  Age: 30 Year
  Sex: Female

DRUGS (1)
  1. CLOZAPINE [Suspect]
     Active Substance: CLOZAPINE
     Indication: Product used for unknown indication
     Route: 048

REACTIONS (6)
  - Withdrawal syndrome [Unknown]
  - Homicidal ideation [Unknown]
  - Product dose omission issue [Unknown]
  - Seizure [Unknown]
  - Sepsis [Unknown]
  - Faecaloma [Unknown]
